FAERS Safety Report 10101627 (Version 15)
Quarter: 2016Q3

REPORT INFORMATION
  Report Type: Report from Study
  Country: CA (occurrence: CA)
  Receive Date: 20140424
  Receipt Date: 20160919
  Transmission Date: 20161108
  Serious: Yes (Hospitalization, Other)
  Sender: FDA-Public Use
  Company Number: CA-ROCHE-1369863

PATIENT
  Age: 75 Year
  Sex: Male
  Weight: 81.8 kg

DRUGS (13)
  1. SOTALOL. [Concomitant]
     Active Substance: SOTALOL
     Dosage: DISCONTINUED JUL OR AUG 2013
     Route: 065
  2. METHYLPREDNISOLONE. [Concomitant]
     Active Substance: METHYLPREDNISOLONE
     Indication: PREMEDICATION
     Route: 042
     Dates: start: 20130205
  3. DIPHENHYDRAMINE HCL [Concomitant]
     Active Substance: DIPHENHYDRAMINE HYDROCHLORIDE
     Indication: PREMEDICATION
     Route: 048
     Dates: start: 20130205
  4. ACETAMINOPHEN. [Concomitant]
     Active Substance: ACETAMINOPHEN
     Indication: PREMEDICATION
     Route: 048
     Dates: start: 20130205
  5. APO-FOLIC [Concomitant]
  6. PREDNISONE. [Concomitant]
     Active Substance: PREDNISONE
  7. MAVIK [Concomitant]
     Active Substance: TRANDOLAPRIL
     Dosage: DISCONTINUED JULY OR AUG 2013
     Route: 065
  8. PREVEX (FELODIPINE) [Concomitant]
     Active Substance: FELODIPINE
  9. CRESTOR [Concomitant]
     Active Substance: ROSUVASTATIN CALCIUM
  10. ASPIRIN. [Concomitant]
     Active Substance: ASPIRIN
     Dosage: DISCONTIUNED JULY OR AUG 2013.
     Route: 065
  11. METHOTREXATE. [Concomitant]
     Active Substance: METHOTREXATE
  12. ACTONEL [Concomitant]
     Active Substance: RISEDRONATE SODIUM
  13. RITUXAN [Suspect]
     Active Substance: RITUXIMAB
     Indication: RHEUMATOID ARTHRITIS
     Dosage: MOST RECENT DOSE ON 1/OCT/2013 AND 06/JUN/2014 AND 19/NOV/2015
     Route: 042
     Dates: start: 20130205

REACTIONS (17)
  - Gout [Unknown]
  - Skin cancer [Recovered/Resolved]
  - Peripheral swelling [Not Recovered/Not Resolved]
  - Confusional state [Unknown]
  - Hypotension [Unknown]
  - Blood pressure systolic increased [Unknown]
  - Lymphoma [Not Recovered/Not Resolved]
  - Infusion related reaction [Unknown]
  - Weight increased [Unknown]
  - Platelet count decreased [Not Recovered/Not Resolved]
  - Oxygen saturation decreased [Unknown]
  - Pneumonia [Unknown]
  - Pain in extremity [Not Recovered/Not Resolved]
  - Wound [Recovered/Resolved]
  - Atrial fibrillation [Unknown]
  - Nervous system disorder [Unknown]
  - Arthralgia [Not Recovered/Not Resolved]

NARRATIVE: CASE EVENT DATE: 2014
